FAERS Safety Report 9629404 (Version 1)
Quarter: 2013Q4

REPORT INFORMATION
  Report Type: Spontaneous
  Country: US (occurrence: US)
  Receive Date: 20131017
  Receipt Date: 20131017
  Transmission Date: 20140711
  Serious: No
  Sender: FDA-Public Use
  Company Number: US-ASTRAZENECA-2013SE62031

PATIENT
  Age: 49 Year
  Sex: Male
  Weight: 88.5 kg

DRUGS (3)
  1. CRESTOR [Suspect]
     Indication: HYPERCHOLESTEROLAEMIA
     Route: 048
  2. ADVAIR [Concomitant]
     Indication: ASTHMA
     Dosage: 100 50 PRN
  3. ZERTEC [Concomitant]
     Indication: HYPERSENSITIVITY
     Dosage: PRN

REACTIONS (1)
  - White blood cell count decreased [Unknown]
